FAERS Safety Report 6180593-7 (Version None)
Quarter: 2009Q2

REPORT INFORMATION
  Report Type: 
  Country: None (occurrence: None)
  Receive Date: 20090506
  Receipt Date: 20090428
  Transmission Date: 20091009
  Serious: Yes (Other)
  Sender: FDA-Public Use
  Company Number: FR-WYE-G02881209

PATIENT
  Sex: Female
  Weight: 78 kg

DRUGS (2)
  1. EFFEXOR [Suspect]
     Indication: DEPRESSION
     Dosage: 150 MG TOTAL DAILY
     Route: 048
     Dates: start: 20051121
  2. LORAZEPAM [Concomitant]
     Indication: ANXIETY
     Dosage: 2 MG DAILY
     Route: 048
     Dates: start: 19940101

REACTIONS (2)
  - ECCHYMOSIS [None]
  - IDIOPATHIC THROMBOCYTOPENIC PURPURA [None]
